FAERS Safety Report 9291089 (Version 4)
Quarter: 2013Q4

REPORT INFORMATION
  Report Type: Spontaneous
  Country: GB (occurrence: None)
  Receive Date: 20121017
  Receipt Date: 20131008
  Transmission Date: 20140711
  Serious: Yes (Death, Other)
  Sender: FDA-Public Use
  Company Number: AUR-APL-2012-03969

PATIENT
  Age: 40 Year
  Sex: Female

DRUGS (2)
  1. MIRTAZAPINE [Suspect]
     Indication: DEPRESSION
     Dosage: 15-45MG A DAY (1 IN 1 D), ORAL
     Route: 048
     Dates: start: 20110615, end: 20120621
  2. ARIPIPRAZOLE [Suspect]
     Indication: SCHIZOPHRENIA
     Dosage: 15 MG ( 15 MG, 1 IN 1 D), ORAL
     Route: 048
     Dates: start: 20110629, end: 20120719

REACTIONS (2)
  - Pulmonary embolism [None]
  - Deep vein thrombosis [None]
